FAERS Safety Report 12693721 (Version 2)
Quarter: 2017Q1

REPORT INFORMATION
  Report Type: Spontaneous
  Country: US (occurrence: US)
  Receive Date: 20160829
  Receipt Date: 20170306
  Transmission Date: 20170428
  Serious: No
  Sender: FDA-Public Use
  Company Number: US-PFIZER INC-2016387489

PATIENT
  Age: 14 Year
  Sex: Male
  Weight: 45.35 kg

DRUGS (4)
  1. GENOTROPIN [Suspect]
     Active Substance: SOMATROPIN
     Dosage: 1.8 MG, UNK (6 DAYS PER WEEK)
     Dates: start: 20160726
  2. GENOTROPIN [Suspect]
     Active Substance: SOMATROPIN
     Dosage: 1.8 MG, UNK (FOR 2 DAYS, TAKEN FROM A 5MG CARTRIDGE)
  3. GENOTROPIN [Suspect]
     Active Substance: SOMATROPIN
     Dosage: 1.4 MG, UNK (EVERY 3RD DAY)
  4. GENOTROPIN [Suspect]
     Active Substance: SOMATROPIN
     Indication: BLOOD GROWTH HORMONE
     Dosage: ONCE AT NIGHT AND 6 DAYS OUT OF THE WEEK

REACTIONS (3)
  - Swelling face [Not Recovered/Not Resolved]
  - Underdose [Unknown]
  - Nasal oedema [Not Recovered/Not Resolved]
